FAERS Safety Report 23660348 (Version 1)
Quarter: 2024Q1

REPORT INFORMATION
  Report Type: Spontaneous
  Country: JP (occurrence: JP)
  Receive Date: 20240321
  Receipt Date: 20240321
  Transmission Date: 20240410
  Serious: Yes (Other)
  Sender: FDA-Public Use
  Company Number: JP-AMGEN-JPNSP2024054502

PATIENT
  Age: 84 Year
  Sex: Male

DRUGS (2)
  1. EVENITY [Suspect]
     Active Substance: ROMOSOZUMAB-AQQG
     Indication: Product used for unknown indication
     Dosage: 210 MILLIGRAM
     Route: 058
     Dates: start: 202305
  2. ELDECALCITOL [Concomitant]
     Active Substance: ELDECALCITOL
     Indication: Blood calcium decreased
     Dosage: UNK, 0.75, 0.5
     Dates: start: 202305

REACTIONS (5)
  - Paralysis [Recovered/Resolved]
  - Spinal ligament ossification [Unknown]
  - Fracture delayed union [Unknown]
  - Device loosening [Unknown]
  - Pseudarthrosis [Unknown]

NARRATIVE: CASE EVENT DATE: 20240101
